FAERS Safety Report 25337059 (Version 1)
Quarter: 2025Q2

REPORT INFORMATION
  Report Type: Spontaneous
  Country: JP (occurrence: JP)
  Receive Date: 20250520
  Receipt Date: 20250520
  Transmission Date: 20250716
  Serious: Yes (Death, Life-Threatening)
  Sender: MERCK SHARP & DOHME LLC
  Company Number: JP-009507513-2285590

PATIENT
  Age: 50 Year
  Sex: Female
  Weight: 51.2 kg

DRUGS (11)
  1. KEYTRUDA [Suspect]
     Active Substance: PEMBROLIZUMAB
     Indication: Transitional cell carcinoma
     Route: 041
     Dates: start: 20241101, end: 20250207
  2. OLOPATADINE [Concomitant]
     Active Substance: OLOPATADINE
     Dates: start: 20241113, end: 20250306
  3. LANSOPRAZOLE [Concomitant]
     Active Substance: LANSOPRAZOLE
     Dates: start: 20241113, end: 20250411
  4. ALENDRONATE [Concomitant]
     Active Substance: ALENDRONATE SODIUM
     Dates: start: 20241113, end: 20250306
  5. Heparinoid cream [Concomitant]
  6. PADCEV [Suspect]
     Active Substance: ENFORTUMAB VEDOTIN-EJFV
     Indication: Transitional cell carcinoma
     Route: 041
     Dates: start: 20241101, end: 20250214
  7. DEXCHLORPHENIRAMINE MALEATE [Concomitant]
     Active Substance: DEXCHLORPHENIRAMINE MALEATE
     Dates: start: 20241113, end: 20250306
  8. DAYVIGO [Concomitant]
     Active Substance: LEMBOREXANT
     Dates: end: 20250413
  9. RAMELTEON [Concomitant]
     Active Substance: RAMELTEON
     Dates: end: 20250413
  10. ELETRIPTAN [Concomitant]
     Active Substance: ELETRIPTAN
     Dates: end: 20250413
  11. CLOBETASOL PROPIONATE [Concomitant]
     Active Substance: CLOBETASOL PROPIONATE

REACTIONS (2)
  - Interstitial lung disease [Fatal]
  - Liver disorder [Not Recovered/Not Resolved]

NARRATIVE: CASE EVENT DATE: 20250313
